FAERS Safety Report 9731078 (Version 1)
Quarter: 2013Q4

REPORT INFORMATION
  Report Type: Report from Study
  Country: US (occurrence: US)
  Receive Date: 20131203
  Receipt Date: 20131203
  Transmission Date: 20140711
  Serious: Yes (Hospitalization)
  Sender: FDA-Public Use
  Company Number: US-BAYER-2013-144417

PATIENT
  Age: 15 Year
  Sex: Male
  Weight: 45.4 kg

DRUGS (5)
  1. SORAFENIB (RAF KINASE INHIBITOR) [Suspect]
     Indication: EWING^S SARCOMA
     Dosage: 200 MG QAM; 250 MG QPM DY 2-28
     Dates: start: 20131030, end: 20131112
  2. TOPOTECAN [Suspect]
     Dosage: 2 MG DAYS 1-5; 8-12
     Route: 048
     Dates: start: 20131029, end: 20131109
  3. DRONABINOL [Concomitant]
     Dosage: 2.5 MG, BID
  4. ONDANSETRON [Concomitant]
     Dosage: 8 MG, PRN Q8H
  5. TRIMETHOPRIM COMP. [Concomitant]
     Dosage: BID FR/SA/SUN

REACTIONS (2)
  - Syncope [None]
  - Anaemia [None]
